FAERS Safety Report 24275359 (Version 1)
Quarter: 2024Q3

REPORT INFORMATION
  Report Type: Spontaneous
  Country: JP (occurrence: JP)
  Receive Date: 20240903
  Receipt Date: 20240903
  Transmission Date: 20241016
  Serious: Yes (Other)
  Sender: SANDOZ
  Company Number: JP-SANDOZ INC.-SDZ2024JP076405

PATIENT

DRUGS (3)
  1. DOCETAXEL [Suspect]
     Active Substance: DOCETAXEL\DOCETAXEL ANHYDROUS
     Indication: Metastatic gastric cancer
     Dosage: 40 MG/M2
     Route: 042
  2. OXALIPLATIN [Suspect]
     Active Substance: OXALIPLATIN
     Indication: Metastatic gastric cancer
     Dosage: 100 MG/M2
     Route: 042
  3. GIMERACIL\OTERACIL\TEGAFUR [Suspect]
     Active Substance: GIMERACIL\OTERACIL POTASSIUM\TEGAFUR
     Indication: Metastatic gastric cancer
     Dosage: UNK
     Route: 048

REACTIONS (1)
  - Upper respiratory tract infection [Unknown]
